FAERS Safety Report 5987191-6 (Version None)
Quarter: 2008Q4

REPORT INFORMATION
  Report Type: 
  Country: None (occurrence: None)
  Receive Date: 20081209
  Receipt Date: 20081127
  Transmission Date: 20090506
  Serious: Yes (Other)
  Sender: FDA-Public Use
  Company Number: GB-ELI_LILLY_AND_COMPANY-GB200811006341

PATIENT
  Sex: Female

DRUGS (14)
  1. BYETTA [Suspect]
     Dosage: 5 UG, 2/D
     Route: 058
     Dates: start: 20080829, end: 20080922
  2. ADCAL [Concomitant]
     Dosage: 1 D/F, 2/D
     Route: 048
  3. ASPIRIN [Concomitant]
     Dosage: 75 MG, DAILY (1/D)
     Route: 048
  4. ATENOLOL [Concomitant]
     Dosage: 50 MG, DAILY (1/D)
     Route: 048
  5. FELODIPINE [Concomitant]
     Dosage: 10 MG, DAILY (1/D)
     Route: 048
  6. FUROSEMIDE [Concomitant]
     Dosage: 40 MG, DAILY (1/D)
     Route: 048
  7. NITROGLYCERIN [Concomitant]
     Dosage: UNK, AS NEEDED
     Route: 060
  8. ISOSORBIDE MONONITRATE [Concomitant]
     Dosage: 60 MG, DAILY (1/D)
     Route: 048
  9. LEVOTHYROXINE SODIUM [Concomitant]
     Dosage: 125 UG, DAILY (1/D)
     Route: 065
  10. LISINOPRIL [Concomitant]
     Dosage: 20 MG, DAILY (1/D)
     Route: 048
  11. MIRTAZAPINE [Concomitant]
     Dosage: 30 MG, DAILY (1/D)
     Route: 065
  12. ACETAMINOPHEN [Concomitant]
     Dosage: UNK, UNKNOWN
     Route: 065
  13. QUININE [Concomitant]
     Dosage: 300 MG, DAILY (1/D)
     Route: 065
  14. SIMVASTATIN [Concomitant]
     Dosage: 20 MG, DAILY (1/D)
     Route: 048

REACTIONS (2)
  - HYPOCALCAEMIA [None]
  - HYPOMAGNESAEMIA [None]
